FAERS Safety Report 6998839-1 (Version None)
Quarter: 2010Q3

REPORT INFORMATION
  Report Type: 
  Country: None (occurrence: None)
  Receive Date: 20100920
  Receipt Date: 20100311
  Transmission Date: 20110219
  Serious: Yes (Other)
  Sender: FDA-Public Use
  Company Number: US-ASTRAZENECA-2009UW20466

PATIENT
  Age: 15 Year
  Sex: Female

DRUGS (7)
  1. SEROQUEL [Suspect]
     Route: 048
     Dates: start: 20041110
  2. TRILEPTAL [Concomitant]
     Dosage: WILL INCREASE 150 MG 1 TABLET IN MORNING AND 2 TABLETS AT NIGHT
     Dates: start: 20020101
  3. WELLBUTRIN SR [Concomitant]
     Route: 048
     Dates: start: 20020101
  4. TRAZODONE HCL [Concomitant]
     Dates: start: 20020101
  5. LORATADINE [Concomitant]
     Dates: start: 20041122
  6. CITALOPRAM HYDROBROMIDE [Concomitant]
     Dates: start: 20041122
  7. ORHTO-CEPT 28 [Concomitant]
     Dates: start: 20041206

REACTIONS (3)
  - KETOACIDOSIS [None]
  - PANCREATITIS [None]
  - TYPE 2 DIABETES MELLITUS [None]
